FAERS Safety Report 5057550-7 (Version None)
Quarter: 2006Q3

REPORT INFORMATION
  Report Type: 
  Country: None (occurrence: None)
  Receive Date: 20060721
  Receipt Date: 20051117
  Transmission Date: 20061208
  Serious: No
  Sender: FDA-Public Use
  Company Number: US-GLAXOSMITHKLINE-A0582779A

PATIENT
  Age: 83 Year
  Sex: Female

DRUGS (6)
  1. AVANDIA [Suspect]
     Dosage: 4MG PER DAY
     Route: 048
  2. GLYBURIDE [Concomitant]
  3. LASIX [Concomitant]
  4. FUROSEMIDE [Concomitant]
  5. ATENOLOL [Concomitant]
  6. ACTONEL [Concomitant]

REACTIONS (3)
  - ABDOMINAL PAIN UPPER [None]
  - FATIGUE [None]
  - JOINT SWELLING [None]
